FAERS Safety Report 19736948 (Version 1)
Quarter: 2021Q3

REPORT INFORMATION
  Report Type: Report from Study
  Country: US (occurrence: US)
  Receive Date: 20210823
  Receipt Date: 20210823
  Transmission Date: 20211014
  Serious: No
  Sender: FDA-Public Use
  Company Number: NVSC2021US186130

PATIENT
  Sex: Female

DRUGS (1)
  1. ILARIS [Suspect]
     Active Substance: CANAKINUMAB
     Indication: ANKYLOSING SPONDYLITIS
     Dosage: Q 4 WEEKS
     Route: 058
     Dates: start: 20210810

REACTIONS (2)
  - Vertigo [Recovered/Resolved]
  - Hypotension [Recovered/Resolved]
